FAERS Safety Report 6701892-3 (Version None)
Quarter: 2010Q2

REPORT INFORMATION
  Report Type: 
  Country: None (occurrence: None)
  Receive Date: 20100429
  Receipt Date: 20100419
  Transmission Date: 20101027
  Serious: Yes (Hospitalization, Other)
  Sender: FDA-Public Use
  Company Number: CA-BAXTER-2010BH010802

PATIENT
  Age: 27 Year
  Sex: Female

DRUGS (4)
  1. GAMMAGARD S/D [Suspect]
     Indication: URTICARIA
     Route: 065
     Dates: start: 20100201
  2. GAMMAGARD S/D [Suspect]
     Indication: OFF LABEL USE
     Route: 065
     Dates: start: 20100201
  3. IMMUNE GLOBULIN (HUMAN) [Suspect]
     Indication: URTICARIA
     Route: 042
     Dates: start: 20090101, end: 20100125
  4. IMMUNE GLOBULIN (HUMAN) [Suspect]
     Route: 042
     Dates: start: 20100126, end: 20100126

REACTIONS (1)
  - ANAPHYLACTIC REACTION [None]
